FAERS Safety Report 8319157-5 (Version None)
Quarter: 2012Q2

REPORT INFORMATION
  Report Type: 
  Country: None (occurrence: None)
  Receive Date: 20120427
  Receipt Date: 20120412
  Transmission Date: 20120825
  Serious: No
  Sender: FDA-Public Use
  Company Number: US-JNJFOC-20120406332

PATIENT
  Sex: Male
  Weight: 92.53 kg

DRUGS (4)
  1. INVEGA SUSTENNA [Suspect]
     Indication: SCHIZOPHRENIA
     Route: 030
     Dates: start: 20120216, end: 20120315
  2. INVEGA SUSTENNA [Suspect]
     Route: 030
     Dates: start: 20120315
  3. INVEGA SUSTENNA [Suspect]
     Route: 030
     Dates: start: 20111227, end: 20120126
  4. INVEGA SUSTENNA [Suspect]
     Route: 030
     Dates: start: 20111222, end: 20111227

REACTIONS (3)
  - DRUG DOSE OMISSION [None]
  - NONSPECIFIC REACTION [None]
  - DEVICE LEAKAGE [None]
